FAERS Safety Report 7782841-6 (Version None)
Quarter: 2011Q3

REPORT INFORMATION
  Report Type: 
  Country: None (occurrence: None)
  Receive Date: 20110927
  Receipt Date: 20110927
  Transmission Date: 20111222
  Serious: No
  Sender: FDA-Public Use
  Company Number: None

PATIENT
  Age: 58 Year
  Sex: Female
  Weight: 130.8 kg

DRUGS (1)
  1. OXALIPLATIN [Suspect]
     Dosage: IV
     Route: 042
     Dates: start: 20110518, end: 20110518

REACTIONS (1)
  - ANAPHYLACTIC REACTION [None]
